FAERS Safety Report 6932197-3 (Version None)
Quarter: 2010Q3

REPORT INFORMATION
  Report Type: 
  Country: None (occurrence: None)
  Receive Date: 20100813
  Receipt Date: 20100622
  Transmission Date: 20110219
  Serious: No
  Sender: FDA-Public Use
  Company Number: 1000014660

PATIENT
  Age: 42 Year
  Sex: Female

DRUGS (5)
  1. SAVELLA [Suspect]
     Indication: FIBROMYALGIA
     Dosage: SEE IMAGE
     Route: 048
     Dates: start: 20100602, end: 20100101
  2. SAVELLA [Suspect]
     Indication: FIBROMYALGIA
     Dosage: SEE IMAGE
     Route: 048
     Dates: start: 20100526, end: 20100526
  3. SAVELLA [Suspect]
     Indication: FIBROMYALGIA
     Dosage: SEE IMAGE
     Route: 048
     Dates: start: 20100527, end: 20100528
  4. SAVELLA [Suspect]
     Indication: FIBROMYALGIA
     Dosage: SEE IMAGE
     Route: 048
     Dates: start: 20100529, end: 20100601
  5. SAVELLA [Suspect]
     Indication: FIBROMYALGIA
     Dosage: 200 MG (100 MG,2 IN 1 D),ORAL
     Route: 048
     Dates: start: 20100601, end: 20100623

REACTIONS (4)
  - ANXIETY [None]
  - BLOOD PRESSURE INCREASED [None]
  - INSOMNIA [None]
  - PALPITATIONS [None]
